FAERS Safety Report 8307920-6 (Version None)
Quarter: 2012Q2

REPORT INFORMATION
  Report Type: 
  Country: None (occurrence: None)
  Receive Date: 20120424
  Receipt Date: 20120419
  Transmission Date: 20120825
  Serious: Yes (Hospitalization)
  Sender: FDA-Public Use
  Company Number: US-GLAXOSMITHKLINE-A0839268A

PATIENT
  Age: 50 Year
  Sex: Male
  Weight: 127.3 kg

DRUGS (1)
  1. AVANDIA [Suspect]
     Indication: DIABETES MELLITUS
     Route: 048
     Dates: start: 20070101, end: 20090101

REACTIONS (4)
  - CARDIAC DISORDER [None]
  - STENT PLACEMENT [None]
  - CHEST PAIN [None]
  - CARDIAC FAILURE CONGESTIVE [None]
